FAERS Safety Report 22199434 (Version 1)
Quarter: 2023Q2

REPORT INFORMATION
  Report Type: Spontaneous
  Country: US (occurrence: US)
  Receive Date: 20230412
  Receipt Date: 20230412
  Transmission Date: 20230721
  Serious: No
  Sender: FDA-Public Use
  Company Number: US-BIOGEN-2023BI01197713

PATIENT

DRUGS (2)
  1. SPINRAZA [Suspect]
     Active Substance: NUSINERSEN
     Indication: Product used for unknown indication
     Route: 050
  2. EVRYSDI [Concomitant]
     Active Substance: RISDIPLAM
     Indication: Product used for unknown indication
     Route: 050

REACTIONS (3)
  - Pain [Unknown]
  - Muscle spasms [Unknown]
  - Abdominal distension [Unknown]
